FAERS Safety Report 6046439-2 (Version None)
Quarter: 2009Q1

REPORT INFORMATION
  Report Type: 
  Country: None (occurrence: None)
  Receive Date: 20090121
  Receipt Date: 20090121
  Transmission Date: 20090719
  Serious: Yes (Life-Threatening, Hospitalization, Other)
  Sender: FDA-Public Use
  Company Number: None

PATIENT
  Sex: Female
  Weight: 12.8 kg

DRUGS (2)
  1. PHENYTOIN [Suspect]
     Indication: EPILEPSY
     Dosage: 70 MG BID PO
     Route: 048
     Dates: start: 20080923, end: 20081002
  2. TOPIRAMATE [Suspect]
     Indication: EPILEPSY
     Dosage: 65 MG BID PO
     Route: 048
     Dates: start: 20080923, end: 20081002

REACTIONS (12)
  - ALANINE AMINOTRANSFERASE INCREASED [None]
  - ASPARTATE AMINOTRANSFERASE INCREASED [None]
  - DRUG RASH WITH EOSINOPHILIA AND SYSTEMIC SYMPTOMS [None]
  - DRUG WITHDRAWAL SYNDROME [None]
  - ENTEROCOCCAL INFECTION [None]
  - PULMONARY OEDEMA [None]
  - RESPIRATORY FAILURE [None]
  - SWELLING FACE [None]
  - TOXIC EPIDERMAL NECROLYSIS [None]
  - WOUND INFECTION BACTERIAL [None]
  - WOUND INFECTION PSEUDOMONAS [None]
  - WOUND INFECTION STAPHYLOCOCCAL [None]
